FAERS Safety Report 17347189 (Version 3)
Quarter: 2020Q2

REPORT INFORMATION
  Report Type: Spontaneous
  Country: US (occurrence: US)
  Receive Date: 20200130
  Receipt Date: 20200609
  Transmission Date: 20200713
  Serious: No
  Sender: FDA-Public Use
  Company Number: US-JNJFOC-20200139154

PATIENT
  Sex: Male

DRUGS (4)
  1. SIMVASTATIN. [Concomitant]
     Active Substance: SIMVASTATIN
     Indication: BLOOD CHOLESTEROL
  2. MULTIVITAMINS                      /00116001/ [Concomitant]
     Active Substance: VITAMINS
  3. ZYTIGA [Suspect]
     Active Substance: ABIRATERONE ACETATE
     Dosage: 2 TABLETS
     Route: 048
  4. ZYTIGA [Suspect]
     Active Substance: ABIRATERONE ACETATE
     Indication: PRODUCT USED FOR UNKNOWN INDICATION
     Dosage: 2 TABLETS/DAY
     Route: 048
     Dates: start: 201909

REACTIONS (3)
  - Dysuria [Not Recovered/Not Resolved]
  - Incorrect dose administered [Unknown]
  - Prostatomegaly [Not Recovered/Not Resolved]

NARRATIVE: CASE EVENT DATE: 2018
